FAERS Safety Report 5757052-6 (Version None)
Quarter: 2008Q2

REPORT INFORMATION
  Report Type: 
  Country: None (occurrence: None)
  Receive Date: 20080603
  Receipt Date: 20080521
  Transmission Date: 20081010
  Serious: Yes (Disabling, Other)
  Sender: FDA-Public Use
  Company Number: B0514017A

PATIENT
  Age: 34 Year
  Sex: Female

DRUGS (2)
  1. PAROXETINE HCL [Suspect]
     Route: 048
     Dates: start: 20070123, end: 20071101
  2. PAROXETINE HCL [Suspect]
     Route: 048
     Dates: start: 20071101

REACTIONS (7)
  - DIZZINESS [None]
  - FEELING DRUNK [None]
  - HEADACHE [None]
  - PARAESTHESIA [None]
  - TREMOR [None]
  - VISUAL DISTURBANCE [None]
  - WITHDRAWAL SYNDROME [None]
